FAERS Safety Report 23328282 (Version 1)
Quarter: 2023Q4

REPORT INFORMATION
  Report Type: Spontaneous
  Country: US (occurrence: US)
  Receive Date: 20231221
  Receipt Date: 20231221
  Transmission Date: 20240110
  Serious: No
  Sender: FDA-Public Use
  Company Number: US-GALDERMA-US2023015403

PATIENT

DRUGS (5)
  1. PROACTIV MD ADAPALENE ACNE TREATMENT [Suspect]
     Active Substance: ADAPALENE
     Indication: Acne cystic
     Dosage: 1 DOSAGE FORM, QD
     Route: 061
     Dates: start: 202309
  2. Proactiv MD Ultra Gentle Cleanser [Concomitant]
     Indication: Acne cystic
     Dosage: 1 DOSAGE FORM, DAILY
     Route: 061
     Dates: start: 202309
  3. Proactiv MD Ultra Hydrating Moisturizer [Concomitant]
     Indication: Acne cystic
     Dosage: 1 DOSAGE FORM, DAILY
     Route: 061
     Dates: start: 202309
  4. Proactiv Zits Happen Patches [Concomitant]
     Indication: Acne cystic
     Dosage: 1 DOSAGE FORM, DAILY
     Route: 061
     Dates: start: 202309
  5. IBUPROFEN [Concomitant]
     Active Substance: IBUPROFEN
     Indication: Product used for unknown indication
     Route: 065

REACTIONS (7)
  - Dry skin [Not Recovered/Not Resolved]
  - Skin burning sensation [Not Recovered/Not Resolved]
  - Eyelid irritation [Not Recovered/Not Resolved]
  - Eyelid pain [Not Recovered/Not Resolved]
  - Acne cystic [Not Recovered/Not Resolved]
  - Condition aggravated [Not Recovered/Not Resolved]
  - Product use in unapproved indication [Recovered/Resolved]

NARRATIVE: CASE EVENT DATE: 20230901
